FAERS Safety Report 8274592-9 (Version None)
Quarter: 2012Q2

REPORT INFORMATION
  Report Type: 
  Country: None (occurrence: None)
  Receive Date: 20120411
  Receipt Date: 20120405
  Transmission Date: 20120825
  Serious: Yes (Death, Hospitalization)
  Sender: FDA-Public Use
  Company Number: US-GLAXOSMITHKLINE-A0933044A

PATIENT
  Age: 56 Year
  Sex: Male
  Weight: 80.9 kg

DRUGS (5)
  1. GLUCOPHAGE [Concomitant]
     Dates: end: 20040109
  2. LIPITOR [Concomitant]
  3. GLUCOTROL [Concomitant]
  4. AVANDIA [Suspect]
     Indication: TYPE 2 DIABETES MELLITUS
     Route: 048
     Dates: start: 20030824, end: 20040109
  5. ALTACE [Concomitant]

REACTIONS (3)
  - MYOCARDIAL INFARCTION [None]
  - DEATH [None]
  - CARDIAC FAILURE CONGESTIVE [None]
